FAERS Safety Report 6956485-X (Version None)
Quarter: 2010Q3

REPORT INFORMATION
  Report Type: 
  Country: None (occurrence: None)
  Receive Date: 20100830
  Receipt Date: 20100824
  Transmission Date: 20110219
  Serious: Yes (Death)
  Sender: FDA-Public Use
  Company Number: JP-BAYER-201014187BYL

PATIENT
  Age: 2 Month

DRUGS (1)
  1. BUFFERIN [Suspect]
     Indication: KAWASAKI'S DISEASE
     Route: 064

REACTIONS (1)
  - SUDDEN INFANT DEATH SYNDROME [None]
